FAERS Safety Report 8950813 (Version 1)
Quarter: 2012Q4

REPORT INFORMATION
  Report Type: Spontaneous
  Country: US (occurrence: None)
  Receive Date: 20121204
  Receipt Date: 20121204
  Transmission Date: 20130627
  Serious: Yes (Disabling, Other)
  Sender: FDA-Public Use
  Company Number: None

PATIENT
  Age: 59 Year
  Sex: Female
  Weight: 54.43 kg

DRUGS (1)
  1. ATORVASTATIN 20MG CVS PHARMACI [Suspect]
     Dates: start: 20120101, end: 20120818

REACTIONS (3)
  - Pain [None]
  - Rash [None]
  - Product substitution issue [None]
